FAERS Safety Report 15776589 (Version 3)
Quarter: 2019Q1

REPORT INFORMATION
  Report Type: Spontaneous
  Country: US (occurrence: US)
  Receive Date: 20181231
  Receipt Date: 20190304
  Transmission Date: 20190417
  Serious: No
  Sender: FDA-Public Use
  Company Number: US-PFIZER INC-2018531053

PATIENT
  Age: 45 Year
  Sex: Female
  Weight: 89.34 kg

DRUGS (8)
  1. CYTOXAN [Concomitant]
     Active Substance: CYCLOPHOSPHAMIDE
     Indication: CHEMOTHERAPY
     Dosage: UNK
  2. DOCETAXEL. [Suspect]
     Active Substance: DOCETAXEL
     Indication: TRIPLE NEGATIVE BREAST CANCER
     Dosage: 04 CYCLES, EVERY THREE WEEKS
     Dates: start: 20120625, end: 20120926
  3. TAXOTERE [Suspect]
     Active Substance: DOCETAXEL
     Indication: TRIPLE NEGATIVE BREAST CANCER
     Dosage: 04 CYCLES, EVERY THREE WEEKS
     Dates: start: 20120625, end: 20120926
  4. ELUDEX [Concomitant]
     Indication: CHEMOTHERAPY
     Dosage: UNK
  5. NEOSAR [Concomitant]
     Active Substance: CYCLOPHOSPHAMIDE
     Indication: CHEMOTHERAPY
     Dosage: UNK
  6. ELLENCE [Concomitant]
     Active Substance: EPIRUBICIN HYDROCHLORIDE
     Indication: CHEMOTHERAPY
     Dosage: UNK
  7. PARAPLATIN [Concomitant]
     Active Substance: CARBOPLATIN
     Indication: CHEMOTHERAPY
     Dosage: UNK
  8. TAXOL [Concomitant]
     Active Substance: PACLITAXEL
     Indication: CHEMOTHERAPY
     Dosage: UNK

REACTIONS (6)
  - Hair disorder [Not Recovered/Not Resolved]
  - Hair texture abnormal [Not Recovered/Not Resolved]
  - Hair colour changes [Not Recovered/Not Resolved]
  - Anxiety [Unknown]
  - Alopecia [Not Recovered/Not Resolved]
  - Madarosis [Not Recovered/Not Resolved]

NARRATIVE: CASE EVENT DATE: 20130326
